FAERS Safety Report 15458480 (Version 1)
Quarter: 2018Q3

REPORT INFORMATION
  Report Type: Spontaneous
  Country: US (occurrence: US)
  Receive Date: 20180930
  Receipt Date: 20180930
  Transmission Date: 20181020
  Serious: Yes (Disabling, Other)
  Sender: FDA-Public Use
  Company Number: None

PATIENT
  Age: 60 Year
  Sex: Female
  Weight: 63 kg

DRUGS (5)
  1. ADDERALL [Concomitant]
     Active Substance: AMPHETAMINE ASPARTATE\AMPHETAMINE SULFATE\DEXTROAMPHETAMINE SACCHARATE\DEXTROAMPHETAMINE SULFATE
  2. ADVIL PM [Concomitant]
     Active Substance: DIPHENHYDRAMINE CITRATE\IBUPROFEN
  3. LEVOTHYROXINE. [Concomitant]
     Active Substance: LEVOTHYROXINE
  4. MIRTAZAPINE 15 MG, 1 QHS FOR INSOMNIA [Suspect]
     Active Substance: MIRTAZAPINE
     Indication: INSOMNIA
     Dosage: ?          QUANTITY:30 TABLET(S);?
     Route: 048
     Dates: start: 20180806, end: 20180814
  5. LEXAPRO [Concomitant]
     Active Substance: ESCITALOPRAM OXALATE

REACTIONS (14)
  - Stomatitis [None]
  - Back pain [None]
  - Altered visual depth perception [None]
  - Musculoskeletal stiffness [None]
  - Muscle twitching [None]
  - Memory impairment [None]
  - Muscle spasms [None]
  - Confusional state [None]
  - Cheilitis [None]
  - Movement disorder [None]
  - Gait disturbance [None]
  - Myalgia [None]
  - Impaired driving ability [None]
  - Dystonia [None]

NARRATIVE: CASE EVENT DATE: 20180814
